FAERS Safety Report 5574047-6 (Version None)
Quarter: 2007Q4

REPORT INFORMATION
  Report Type: 
  Country: None (occurrence: None)
  Receive Date: 20071221
  Receipt Date: 20071212
  Transmission Date: 20080405
  Serious: Yes (Death, Other)
  Sender: FDA-Public Use
  Company Number: US021789

PATIENT
  Age: 70 Year
  Sex: Male

DRUGS (1)
  1. TRISENOX [Suspect]
     Dosage: INTRAVENOUS DRIP
     Route: 041
     Dates: start: 20071101, end: 20071119

REACTIONS (6)
  - ALANINE AMINOTRANSFERASE INCREASED [None]
  - ASPARTATE AMINOTRANSFERASE INCREASED [None]
  - DRY MOUTH [None]
  - HERPES SIMPLEX [None]
  - ORAL INTAKE REDUCED [None]
  - PANCYTOPENIA [None]
